FAERS Safety Report 11237732 (Version 3)
Quarter: 2016Q3

REPORT INFORMATION
  Report Type: Spontaneous
  Country: GB (occurrence: GB)
  Receive Date: 20150703
  Receipt Date: 20160705
  Transmission Date: 20161109
  Serious: Yes (Other)
  Sender: FDA-Public Use
  Company Number: GB-JNJFOC-20140303538

PATIENT
  Age: 35 Year
  Sex: Female
  Weight: 50 kg

DRUGS (6)
  1. AMOXICILLIN. [Concomitant]
     Active Substance: AMOXICILLIN
     Indication: COUGH
     Route: 048
     Dates: start: 20141029, end: 20141102
  2. SALBUTAMOL [Concomitant]
     Active Substance: ALBUTEROL
     Indication: WHEEZING
     Route: 055
     Dates: start: 20141029, end: 20141029
  3. SALBUTAMOL [Concomitant]
     Active Substance: ALBUTEROL
     Indication: COUGH
     Route: 055
     Dates: start: 20141029, end: 20141029
  4. CLOMIPHENE [Concomitant]
     Active Substance: CLOMIPHENE
     Indication: AMENORRHOEA
     Route: 048
     Dates: start: 20140126, end: 20140130
  5. FOLIC ACID. [Concomitant]
     Active Substance: FOLIC ACID
     Indication: PRODUCT USED FOR UNKNOWN INDICATION
     Dosage: 400
     Route: 048
     Dates: start: 20140307
  6. OVEX [Suspect]
     Active Substance: MEBENDAZOLE
     Indication: ENTEROBIASIS
     Dosage: SINGLE DOSE
     Route: 048
     Dates: start: 20140225, end: 20140225

REACTIONS (2)
  - Exposure during pregnancy [Not Recovered/Not Resolved]
  - Caesarean section [Recovered/Resolved]

NARRATIVE: CASE EVENT DATE: 2014
